FAERS Safety Report 9868179 (Version 1)
Quarter: 2014Q1

REPORT INFORMATION
  Report Type: Report from Study
  Country: AU (occurrence: AU)
  Receive Date: 20140204
  Receipt Date: 20140204
  Transmission Date: 20141002
  Serious: Yes (Other)
  Sender: FDA-Public Use
  Company Number: PHHY2014AU012135

PATIENT
  Sex: 0

DRUGS (12)
  1. ACLASTA [Suspect]
     Dosage: 5 MG/100ML, YEARLY
     Route: 042
     Dates: start: 20100130
  2. ACLASTA [Suspect]
     Dosage: 5 MG/100ML, YEARLY
     Route: 042
     Dates: start: 20110129
  3. ACLASTA [Suspect]
     Dosage: 5 MG/100ML, YEARLY
     Route: 042
     Dates: start: 20120118
  4. ACLASTA [Suspect]
     Dosage: 5 MG/100ML, YEARLY
     Route: 042
     Dates: start: 20130130
  5. CARTIA                                  /AUS/ [Concomitant]
     Dosage: 100 MG, UNK
     Dates: start: 20121210
  6. CHOLECALCIFEROL [Concomitant]
     Indication: VITAMIN D DECREASED
     Dosage: 1000 U (25 UG), DAILY
     Dates: start: 20130307
  7. DURO-K [Concomitant]
     Dosage: 600 MG, DAILY
     Dates: start: 20120302
  8. FRUSEMIDE [Concomitant]
     Dosage: 20 MG, QD (IN THE MORNING)
     Dates: start: 20131219
  9. KENACOMB OTIC [Concomitant]
     Indication: OTITIS EXTERNA
     Dosage: 2-3 GTT (1MG/2.5MG/0.25MG/100000U/G) RIGHT SIDE, UNK
     Dates: start: 20131116
  10. NEXIUM//ESOMEPRAZOLE MAGNESIUM [Concomitant]
     Dosage: 40 MG, DAILY
     Dates: start: 20130831
  11. OZLODIP [Concomitant]
     Dosage: 2.5 MG (1/2 TABLET), QD (AT NIGHT)
     Dates: start: 20131219
  12. PANADOL OSTEO [Concomitant]
     Indication: SPINAL OSTEOARTHRITIS
     Dosage: 1330 MG, TID
     Dates: start: 20131219

REACTIONS (6)
  - Pulmonary embolism [Unknown]
  - Type 2 diabetes mellitus [Unknown]
  - Scleroderma [Unknown]
  - Age-related macular degeneration [Unknown]
  - Raynaud^s phenomenon [Unknown]
  - Osteoporosis [Unknown]
